FAERS Safety Report 7012790-2 (Version None)
Quarter: 2010Q3

REPORT INFORMATION
  Report Type: 
  Country: None (occurrence: None)
  Receive Date: 20100924
  Receipt Date: 20100920
  Transmission Date: 20110219
  Serious: Yes (Hospitalization)
  Sender: FDA-Public Use
  Company Number: A0882988A

PATIENT
  Age: 55 Year
  Sex: Male

DRUGS (1)
  1. AVANDIA [Suspect]
     Indication: BLOOD GLUCOSE INCREASED
     Dosage: 8MG UNKNOWN
     Route: 048
     Dates: start: 20021002, end: 20031015

REACTIONS (5)
  - ARTERIOSCLEROSIS [None]
  - CARDIAC FAILURE [None]
  - CONVULSION [None]
  - MYOCARDIAL INFARCTION [None]
  - RASH [None]
